FAERS Safety Report 8329227-3 (Version None)
Quarter: 2012Q2

REPORT INFORMATION
  Report Type: 
  Country: None (occurrence: None)
  Receive Date: 20120502
  Receipt Date: 20120427
  Transmission Date: 20120825
  Serious: Yes (Death)
  Sender: FDA-Public Use
  Company Number: US-CELGENEUS-163-21880-12043214

PATIENT
  Sex: Female
  Weight: 90.8 kg

DRUGS (8)
  1. BLOOD PRESSURE MEDICATION [Concomitant]
     Dosage: 5 MILLIGRAM
     Route: 048
  2. ASPIRIN [Concomitant]
     Dosage: 375 MILLIGRAM
     Route: 048
     Dates: start: 20080101
  3. ALKERAN [Concomitant]
     Dosage: 2 MILLIGRAM
     Route: 048
     Dates: start: 20120301
  4. TRAMADOL HCL [Concomitant]
     Dosage: 50 MILLIGRAM
     Route: 048
     Dates: start: 19950101
  5. REVLIMID [Suspect]
     Dosage: 15-10MG
     Route: 048
     Dates: start: 20100601
  6. REVLIMID [Suspect]
     Dosage: 5 MILLIGRAM
     Route: 048
     Dates: start: 20120301
  7. PLAQUENIL [Concomitant]
     Dosage: 200 MILLIGRAM
     Route: 048
     Dates: start: 19950101
  8. REVLIMID [Suspect]
     Indication: MULTIPLE MYELOMA
     Dosage: 25 MILLIGRAM
     Route: 048
     Dates: start: 20090401

REACTIONS (2)
  - MULTIPLE MYELOMA [None]
  - DISEASE PROGRESSION [None]
